FAERS Safety Report 15989197 (Version 2)
Quarter: 2019Q2

REPORT INFORMATION
  Report Type: Spontaneous
  Country: JP (occurrence: JP)
  Receive Date: 20190221
  Receipt Date: 20190422
  Transmission Date: 20190711
  Serious: Yes (Death, Hospitalization, Other)
  Sender: FDA-Public Use
  Company Number: JP-BRISTOL-MYERS SQUIBB COMPANY-BMS-2019-005842

PATIENT
  Age: 58 Year
  Sex: Male
  Weight: 45 kg

DRUGS (7)
  1. CODEINE [Concomitant]
     Active Substance: CODEINE
     Indication: COUGH
     Dosage: 15 UNK
     Route: 048
     Dates: start: 20170403, end: 20171028
  2. CARBAZOCHROME SULFONATE NA [Concomitant]
     Indication: HAEMOPTYSIS
     Dosage: 30 ABSENT
     Route: 048
     Dates: start: 20170119, end: 20171028
  3. TRANEXAMIC ACID TOWA [Concomitant]
     Indication: HAEMOPTYSIS
     Dosage: 250 MG, Q8H
     Route: 048
     Dates: start: 20170119, end: 20171028
  4. OPDIVO [Suspect]
     Active Substance: NIVOLUMAB
     Indication: NON-SMALL CELL LUNG CANCER RECURRENT
     Dosage: 160 ABSENT
     Route: 041
     Dates: start: 20171002, end: 20171002
  5. NAIXAN                             /00256201/ [Concomitant]
     Active Substance: NAPROXEN
     Indication: TUMOUR ASSOCIATED FEVER
     Dosage: 600 UNK, Q8H
     Route: 048
     Dates: start: 20170119, end: 20171028
  6. CALONAL [Concomitant]
     Active Substance: ACETAMINOPHEN
     Indication: PAIN
     Dosage: 400 MG, Q8H
     Route: 048
     Dates: start: 20170112, end: 20171028
  7. NEXIUM [Concomitant]
     Active Substance: ESOMEPRAZOLE MAGNESIUM
     Indication: PROPHYLAXIS AGAINST GASTROINTESTINAL ULCER
     Dosage: 20 ABSENT
     Route: 048
     Dates: start: 20170119, end: 20171028

REACTIONS (4)
  - Pyrexia [Not Recovered/Not Resolved]
  - Malignant neoplasm progression [Fatal]
  - Hypoxia [Fatal]
  - Pneumonitis [Fatal]

NARRATIVE: CASE EVENT DATE: 20171012
